FAERS Safety Report 6954386-4 (Version None)
Quarter: 2010Q3

REPORT INFORMATION
  Report Type: 
  Country: None (occurrence: None)
  Receive Date: 20100829
  Receipt Date: 20100719
  Transmission Date: 20110219
  Serious: No
  Sender: FDA-Public Use
  Company Number: US-ABBOTT-10P-163-0658420-00

PATIENT
  Sex: Female
  Weight: 61.29 kg

DRUGS (3)
  1. NIASPAN [Suspect]
     Indication: LIPOPROTEIN (A) ABNORMAL
     Dosage: AT BEDTIME
  2. MULTI-VITAMIN [Concomitant]
     Indication: PRODUCT USED FOR UNKNOWN INDICATION
  3. VITAMIN B COMPLEX CAP [Concomitant]
     Indication: PRODUCT USED FOR UNKNOWN INDICATION

REACTIONS (2)
  - ERUCTATION [None]
  - FLATULENCE [None]
